FAERS Safety Report 7617106-6 (Version None)
Quarter: 2011Q3

REPORT INFORMATION
  Report Type: 
  Country: None (occurrence: None)
  Receive Date: 20110718
  Receipt Date: 20110705
  Transmission Date: 20111222
  Serious: Yes (Other)
  Sender: FDA-Public Use
  Company Number: US-BAYER-2011-043536

PATIENT
  Age: 40 Year
  Sex: Female

DRUGS (1)
  1. BETAFERON [Suspect]
     Indication: RELAPSING-REMITTING MULTIPLE SCLEROSIS
     Dosage: 8 MIU, QOD
     Route: 058
     Dates: start: 20110326

REACTIONS (11)
  - RECTAL HAEMORRHAGE [None]
  - DIARRHOEA [None]
  - URINARY TRACT INFECTION [None]
  - CONTUSION [None]
  - MALAISE [None]
  - ABDOMINAL PAIN [None]
  - ABDOMINAL DISTENSION [None]
  - HAEMATOCHEZIA [None]
  - CHILLS [None]
  - NIGHT SWEATS [None]
  - HEADACHE [None]
